FAERS Safety Report 16483114 (Version 1)
Quarter: 2019Q2

REPORT INFORMATION
  Report Type: Spontaneous
  Country: SE (occurrence: SE)
  Receive Date: 20190627
  Receipt Date: 20190627
  Transmission Date: 20190711
  Serious: Yes (Hospitalization)
  Sender: FDA-Public Use
  Company Number: SE-009507513-1906SWE008458

PATIENT
  Age: 41 Year
  Sex: Male

DRUGS (2)
  1. DESLORATADINE. [Suspect]
     Active Substance: DESLORATADINE
     Dosage: UNK
     Dates: start: 201905
  2. IBUMETIN [Suspect]
     Active Substance: IBUPROFEN
     Indication: LYMPH NODE PAIN
     Dosage: UNK
     Dates: start: 20190509, end: 20190511

REACTIONS (1)
  - Stevens-Johnson syndrome [Not Recovered/Not Resolved]

NARRATIVE: CASE EVENT DATE: 201905
